FAERS Safety Report 4392241-7 (Version None)
Quarter: 2004Q3

REPORT INFORMATION
  Report Type: 
  Country: None (occurrence: None)
  Receive Date: 20040702
  Receipt Date: 20040627
  Transmission Date: 20050211
  Serious: Yes (Other)
  Sender: FDA-Public Use
  Company Number: 2004-06-2097

PATIENT
  Sex: Male

DRUGS (1)
  1. INTRON A [Suspect]
     Indication: HEPATITIS
     Dates: start: 19950101

REACTIONS (2)
  - AMNESIA [None]
  - MACULAR DEGENERATION [None]
